FAERS Safety Report 9770895 (Version 1)
Quarter: 2013Q4

REPORT INFORMATION
  Report Type: Spontaneous
  Country: US (occurrence: US)
  Receive Date: 20131218
  Receipt Date: 20131218
  Transmission Date: 20140711
  Serious: No
  Sender: FDA-Public Use
  Company Number: US-MYLANLABS-2013S1013969

PATIENT
  Age: 47 Year
  Sex: Female
  Weight: 63.5 kg

DRUGS (3)
  1. FLUVOXAMINE [Suspect]
     Indication: DEPRESSION
     Route: 048
     Dates: start: 201301, end: 201306
  2. FLUVOXAMINE [Suspect]
     Indication: OFF LABEL USE
     Route: 048
     Dates: start: 201301, end: 201306
  3. XANAX [Concomitant]
     Indication: ANXIETY
     Route: 048

REACTIONS (3)
  - Abdominal pain upper [Recovered/Resolved]
  - Off label use [None]
  - Abdominal pain upper [None]
